FAERS Safety Report 11364857 (Version 1)
Quarter: 2015Q3

REPORT INFORMATION
  Report Type: Spontaneous
  Country: DE (occurrence: DE)
  Receive Date: 20150811
  Receipt Date: 20150811
  Transmission Date: 20151125
  Serious: Yes (Other)
  Sender: FDA-Public Use
  Company Number: DE-PFIZER INC-2015262469

PATIENT
  Sex: Female

DRUGS (2)
  1. XGEVA [Concomitant]
     Active Substance: DENOSUMAB
  2. RAPAMUNE [Suspect]
     Active Substance: SIROLIMUS

REACTIONS (3)
  - Breast cancer female [Unknown]
  - Aphthous ulcer [Unknown]
  - Dyspnoea [Unknown]
